FAERS Safety Report 21936794 (Version 2)
Quarter: 2023Q1

REPORT INFORMATION
  Report Type: Spontaneous
  Country: GB (occurrence: GB)
  Receive Date: 20230201
  Receipt Date: 20230328
  Transmission Date: 20230417
  Serious: Yes (Other)
  Sender: FDA-Public Use
  Company Number: GB-MYLANLABS-2023M1001225

PATIENT
  Age: 19 Year
  Sex: Female

DRUGS (10)
  1. CLOZARIL [Suspect]
     Active Substance: CLOZAPINE
     Indication: Schizophrenia
     Dosage: UNK
     Route: 048
     Dates: start: 20210601
  2. CLOZARIL [Suspect]
     Active Substance: CLOZAPINE
     Dosage: 275 MILLIGRAM, QD, (DAILY DOSAGE)
     Route: 048
     Dates: start: 20220927
  3. CLOZARIL [Suspect]
     Active Substance: CLOZAPINE
     Dosage: 50 MILLIGRAM, QD, (REDUCED TO 50 MG/DAY)
     Route: 048
  4. CLOZARIL [Suspect]
     Active Substance: CLOZAPINE
     Dosage: 275 MILLIGRAM (PER DAY IN DIVIDED DOSES)
     Route: 048
     Dates: end: 20221102
  5. CLOZARIL [Suspect]
     Active Substance: CLOZAPINE
     Dosage: 250 MILLIGRAM (PER DAY IN DIVIDED DOSES)
     Route: 048
     Dates: start: 20221103, end: 20230104
  6. CLOZARIL [Suspect]
     Active Substance: CLOZAPINE
     Dosage: 225 MILLIGRAM (PER DAY IN DIVIDED DOSES)
     Route: 048
     Dates: start: 20230105, end: 20230126
  7. CLOZARIL [Suspect]
     Active Substance: CLOZAPINE
     Dosage: 250 MILLIGRAM, QD
     Route: 048
     Dates: start: 2023
  8. CLOZARIL [Suspect]
     Active Substance: CLOZAPINE
     Dosage: 225 MILLIGRAM, QD
     Route: 048
     Dates: start: 20230104
  9. CLOZARIL [Suspect]
     Active Substance: CLOZAPINE
     Dosage: 200 MILLIGRAM, QD
     Route: 048
     Dates: start: 20230125
  10. CLOZARIL [Suspect]
     Active Substance: CLOZAPINE
     Dosage: 200 MILLIGRAM, QD (NOCTE, PM)
     Route: 048
     Dates: start: 20230127

REACTIONS (2)
  - Antipsychotic drug level increased [Recovering/Resolving]
  - Tachycardia [Recovering/Resolving]

NARRATIVE: CASE EVENT DATE: 20220927
